FAERS Safety Report 9166528 (Version 2)
Quarter: 2013Q2

REPORT INFORMATION
  Report Type: Spontaneous
  Country: US (occurrence: DE)
  Receive Date: 20130315
  Receipt Date: 20130424
  Transmission Date: 20140414
  Serious: Yes (Death, Life-Threatening, Other)
  Sender: FDA-Public Use
  Company Number: DE-FRI-1000043389

PATIENT
  Age: 75 Year
  Sex: Male

DRUGS (3)
  1. CEFTAROLINE FOSAMIL [Suspect]
     Indication: INTERVERTEBRAL DISCITIS
     Dosage: 600 MG
     Route: 042
     Dates: start: 20130130, end: 20130225
  2. CEFTAROLINE FOSAMIL [Suspect]
     Indication: STAPHYLOCOCCAL INFECTION
  3. DAPTOMYCIN [Suspect]
     Indication: STAPHYLOCOCCAL INFECTION
     Route: 042

REACTIONS (2)
  - Death [Fatal]
  - General physical health deterioration [Unknown]
